FAERS Safety Report 11279565 (Version 1)
Quarter: 2015Q3

REPORT INFORMATION
  Report Type: Spontaneous
  Country: None (occurrence: None)
  Receive Date: 20150715
  Receipt Date: 20150715
  Transmission Date: 20151125
  Serious: Yes (Life-Threatening, Hospitalization)
  Sender: FDA-Public Use
  Company Number: None

PATIENT
  Age: 38 Year
  Sex: Male
  Weight: 77.11 kg

DRUGS (2)
  1. NOLVADEX NICIN HAWTHORN EXTRACT [Concomitant]
  2. NOLVADEX [Suspect]
     Active Substance: TAMOXIFEN CITRATE
     Route: 048

REACTIONS (8)
  - Syncope [None]
  - Vertigo [None]
  - Balance disorder [None]
  - Extraocular muscle paresis [None]
  - Drug interaction [None]
  - Transient ischaemic attack [None]
  - Self-medication [None]
  - Feeling abnormal [None]
